FAERS Safety Report 15737536 (Version 2)
Quarter: 2019Q1

REPORT INFORMATION
  Report Type: Spontaneous
  Country: US (occurrence: US)
  Receive Date: 20181219
  Receipt Date: 20190212
  Transmission Date: 20190417
  Serious: No
  Sender: FDA-Public Use
  Company Number: US-ASTRAZENECA-2018SF56591

PATIENT
  Sex: Male

DRUGS (1)
  1. SYMBICORT [Suspect]
     Active Substance: BUDESONIDE\FORMOTEROL FUMARATE DIHYDRATE
     Dosage: 80/4.5MCG 2 PUFFS TWICE A DAY
     Route: 055

REACTIONS (4)
  - Device malfunction [Unknown]
  - Device failure [Unknown]
  - Intentional product misuse [Unknown]
  - Mental disorder [Unknown]
